FAERS Safety Report 9259123 (Version 2)
Quarter: 2013Q2

REPORT INFORMATION
  Report Type: Spontaneous
  Country: PE (occurrence: PE)
  Receive Date: 20130426
  Receipt Date: 20130528
  Transmission Date: 20140414
  Serious: Yes (Other)
  Sender: FDA-Public Use
  Company Number: PE-PFIZER INC-2013127293

PATIENT
  Age: 74 Year
  Sex: Male

DRUGS (2)
  1. XALATAN [Suspect]
     Indication: GLAUCOMA
     Dosage: UNK
     Route: 047
     Dates: end: 20130227
  2. XALATAN [Suspect]
     Dosage: UNK
     Route: 047

REACTIONS (2)
  - Glaucoma surgery [Recovered/Resolved]
  - Glaucoma surgery [Recovered/Resolved]
